FAERS Safety Report 6547448-7 (Version None)
Quarter: 2010Q1

REPORT INFORMATION
  Report Type: 
  Country: None (occurrence: None)
  Receive Date: 20100122
  Receipt Date: 20091207
  Transmission Date: 20100710
  Serious: Yes (Other)
  Sender: FDA-Public Use
  Company Number: JP-ROCHE-680379

PATIENT
  Sex: Female

DRUGS (17)
  1. TOCILIZUMAB [Suspect]
     Indication: RHEUMATOID ARTHRITIS
     Route: 041
     Dates: start: 20081029, end: 20081029
  2. TOCILIZUMAB [Suspect]
     Route: 041
     Dates: start: 20081126, end: 20081126
  3. TOCILIZUMAB [Suspect]
     Route: 041
     Dates: start: 20081224, end: 20081224
  4. TOCILIZUMAB [Suspect]
     Route: 041
     Dates: start: 20090121, end: 20090121
  5. TOCILIZUMAB [Suspect]
     Route: 041
     Dates: start: 20090218, end: 20090218
  6. TOCILIZUMAB [Suspect]
     Route: 041
     Dates: start: 20090318, end: 20090318
  7. TOCILIZUMAB [Suspect]
     Route: 041
     Dates: start: 20090415
  8. DICLOFENAC SODIUM [Suspect]
     Indication: RHEUMATOID ARTHRITIS
     Dosage: DRUG REPORTED AS : VOLTAREN SR(DICLOFENAC SODIUM)
     Route: 048
     Dates: end: 20090304
  9. MELOXICAM [Suspect]
     Indication: RHEUMATOID ARTHRITIS
     Dosage: DRUG REPORTED AS: MOBIC(MELOXICAM)
     Route: 048
     Dates: start: 20090218
  10. METOLATE [Concomitant]
     Route: 048
  11. PROGRAF [Concomitant]
     Dosage: DRUG REPORTED AS: PROGRAF(TACROLIMUS HYDRATE)
     Route: 048
  12. ISCOTIN [Concomitant]
     Dosage: DOSE FORM: ORAL FORMULATION (NOT OTHERWISE SPECIFIED)
     Route: 048
  13. MEDROL [Concomitant]
     Route: 048
  14. MUCOSTA [Concomitant]
     Route: 048
     Dates: end: 20081223
  15. FOLIAMIN [Concomitant]
     Route: 048
  16. VITAMEDIN [Concomitant]
     Dosage: DRUG REPORTED AS: VITAMEDIN(BENFOTIAMINE_B6_B12 COMBINED DRUG)
     Route: 048
  17. MAGNESIUM OXIDE [Concomitant]
     Route: 048

REACTIONS (1)
  - GASTRIC ULCER [None]
